FAERS Safety Report 11916775 (Version 1)
Quarter: 2016Q1

REPORT INFORMATION
  Report Type: Spontaneous
  Country: FR (occurrence: FR)
  Receive Date: 20160114
  Receipt Date: 20160114
  Transmission Date: 20160526
  Serious: Yes (Hospitalization)
  Sender: FDA-Public Use
  Company Number: FR-SA-2016SA004162

PATIENT
  Age: 89 Year
  Sex: Male

DRUGS (8)
  1. SEROPRAM [Concomitant]
     Active Substance: CITALOPRAM HYDROBROMIDE
  2. TAXOTERE [Suspect]
     Active Substance: DOCETAXEL
     Route: 042
     Dates: start: 20150724, end: 20150724
  3. KARDEGIC [Concomitant]
     Active Substance: ASPIRIN LYSINE
  4. LYRICA [Suspect]
     Active Substance: PREGABALIN
     Route: 048
  5. TEMESTA [Concomitant]
     Active Substance: LORAZEPAM
     Dosage: 1 MG
  6. TAXOTERE [Suspect]
     Active Substance: DOCETAXEL
     Route: 042
     Dates: start: 20150701, end: 20150701
  7. LYRICA [Suspect]
     Active Substance: PREGABALIN
     Route: 048
     Dates: start: 201507
  8. VALSARTAN. [Concomitant]
     Active Substance: VALSARTAN
     Dosage: 80 MG

REACTIONS (1)
  - Cardiac failure [Recovered/Resolved]

NARRATIVE: CASE EVENT DATE: 20150801
